FAERS Safety Report 25265421 (Version 1)
Quarter: 2025Q2

REPORT INFORMATION
  Report Type: Report from Study
  Country: US (occurrence: US)
  Receive Date: 20250502
  Receipt Date: 20250502
  Transmission Date: 20250716
  Serious: Yes (Hospitalization)
  Sender: EISAI
  Company Number: US-Eisai-EC-2025-188658

PATIENT
  Age: 70 Year
  Sex: Male
  Weight: 113 kg

DRUGS (2)
  1. LENVIMA [Suspect]
     Active Substance: LENVATINIB
     Indication: Renal cancer
     Dates: start: 2021, end: 202403
  2. LENVIMA [Suspect]
     Active Substance: LENVATINIB
     Dates: start: 202404

REACTIONS (2)
  - Disorientation [Unknown]
  - Blood pressure increased [Unknown]
